FAERS Safety Report 16012181 (Version 1)
Quarter: 2019Q1

REPORT INFORMATION
  Report Type: Spontaneous
  Country: NO (occurrence: NO)
  Receive Date: 20190227
  Receipt Date: 20190227
  Transmission Date: 20190418
  Serious: Yes (Hospitalization, Other)
  Sender: FDA-Public Use
  Company Number: NO-GLAXOSMITHKLINE-NO2019031030

PATIENT
  Age: 52 Year
  Sex: Female

DRUGS (3)
  1. LAMICTAL [Suspect]
     Active Substance: LAMOTRIGINE
     Indication: DEPRESSED MOOD
     Dosage: 25 MG, QD
     Route: 048
     Dates: start: 20190114, end: 20190128
  2. MEDIKINET [Concomitant]
     Active Substance: METHYLPHENIDATE
     Dosage: 40 MG + 20 MG
     Route: 048
  3. LEVAXIN [Concomitant]
     Active Substance: LEVOTHYROXINE SODIUM
     Indication: PRODUCT USED FOR UNKNOWN INDICATION
     Dosage: 100 MICROGRAM MONDAY, WEDENESDAY AND FRIDAY50 MICROGRAM TUESDAY, THURSDAY, SATURDAY AND SUNDAY
     Route: 048

REACTIONS (3)
  - Rash generalised [Recovering/Resolving]
  - Drug-induced liver injury [Recovering/Resolving]
  - Encephalitis [Recovering/Resolving]

NARRATIVE: CASE EVENT DATE: 20190127
